FAERS Safety Report 23999732 (Version 1)
Quarter: 2024Q2

REPORT INFORMATION
  Report Type: Spontaneous
  Country: US (occurrence: US)
  Receive Date: 20240621
  Receipt Date: 20240621
  Transmission Date: 20240716
  Serious: Yes (Hospitalization)
  Sender: FDA-Public Use
  Company Number: US-MYLANLABS-2024M1056218

PATIENT
  Age: 63 Year
  Sex: Male

DRUGS (4)
  1. VANCOMYCIN [Suspect]
     Active Substance: VANCOMYCIN
     Indication: Staphylococcal infection
     Dosage: UNK
     Route: 065
     Dates: start: 202102, end: 20210226
  2. DAPTOMYCIN [Suspect]
     Active Substance: DAPTOMYCIN
     Indication: Staphylococcal infection
     Dosage: UNK
     Route: 065
     Dates: start: 2021, end: 2021
  3. DALBAVANCIN [Suspect]
     Active Substance: DALBAVANCIN
     Indication: Staphylococcal infection
     Dosage: 1500 MILLIGRAM
     Route: 065
     Dates: start: 20210226, end: 2021
  4. DALBAVANCIN [Suspect]
     Active Substance: DALBAVANCIN
     Dosage: 1000 MILLIGRAM
     Route: 065
     Dates: start: 20210315, end: 2021

REACTIONS (1)
  - Multiple-drug resistance [Unknown]

NARRATIVE: CASE EVENT DATE: 20210201
